FAERS Safety Report 4511971-7 (Version None)
Quarter: 2004Q4

REPORT INFORMATION
  Report Type: 
  Country: None (occurrence: None)
  Receive Date: 20041129
  Receipt Date: 20031017
  Transmission Date: 20050328
  Serious: No
  Sender: FDA-Public Use
  Company Number: US-BRISTOL-MYERS SQUIBB COMPANY-12422150

PATIENT
  Age: 37 Year
  Sex: Male

DRUGS (6)
  1. SUSTIVA [Suspect]
     Indication: HIV INFECTION
     Dosage: TAKEN AT HOUR OF SLEEP
     Route: 048
     Dates: start: 19991001
  2. ZERIT [Concomitant]
     Dates: start: 20021201
  3. VIDEX EC [Concomitant]
     Dates: start: 20021201
  4. SEPTRA [Concomitant]
     Dates: start: 20021201
  5. WELLBUTRIN SR [Concomitant]
     Dates: start: 20021201
  6. DITROPAN [Concomitant]
     Dates: start: 20021201

REACTIONS (1)
  - GYNAECOMASTIA [None]
